FAERS Safety Report 10665951 (Version 2)
Quarter: 2015Q1

REPORT INFORMATION
  Report Type: Spontaneous
  Country: US (occurrence: US)
  Receive Date: 20141219
  Receipt Date: 20150130
  Transmission Date: 20150720
  Serious: Yes (Death, Hospitalization)
  Sender: FDA-Public Use
  Company Number: US-INCYTE CORPORATION-2014IN003880

PATIENT
  Age: 75 Year
  Sex: Female

DRUGS (9)
  1. SYNTHROID [Concomitant]
     Active Substance: LEVOTHYROXINE SODIUM
  2. METOLAZONE. [Concomitant]
     Active Substance: METOLAZONE
  3. ALLOPURINOL. [Concomitant]
     Active Substance: ALLOPURINOL
  4. FUROSEMIDE. [Concomitant]
     Active Substance: FUROSEMIDE
  5. PRILOSEC [Concomitant]
     Active Substance: OMEPRAZOLE MAGNESIUM
  6. JAKAFI [Suspect]
     Active Substance: RUXOLITINIB
     Indication: MYELOFIBROSIS
     Dosage: 10 MG, BID
     Dates: start: 20130925
  7. EXJADE [Concomitant]
     Active Substance: DEFERASIROX
  8. WARFARIN [Concomitant]
     Active Substance: WARFARIN
  9. FOLIC ACID. [Concomitant]
     Active Substance: FOLIC ACID

REACTIONS (5)
  - Pulmonary hypertension [Recovering/Resolving]
  - Death [Fatal]
  - Fall [None]
  - Aortic valve disease [Recovering/Resolving]
  - Loss of consciousness [None]

NARRATIVE: CASE EVENT DATE: 20141111
